FAERS Safety Report 11180335 (Version 1)
Quarter: 2015Q2

REPORT INFORMATION
  Report Type: Spontaneous
  Country: IL (occurrence: IL)
  Receive Date: 20150611
  Receipt Date: 20150611
  Transmission Date: 20150821
  Serious: Yes (Other)
  Sender: FDA-Public Use
  Company Number: IL-ENDO PHARMACEUTICALS INC.-2015-001185

PATIENT
  Age: 42 Year
  Sex: Male

DRUGS (1)
  1. AVEED [Suspect]
     Active Substance: TESTOSTERONE UNDECANOATE
     Indication: OFF LABEL USE
     Route: 065
     Dates: start: 2013, end: 201412

REACTIONS (5)
  - Blood testosterone decreased [Unknown]
  - Hypogonadism [Unknown]
  - Blood luteinising hormone decreased [Unknown]
  - Blood follicle stimulating hormone decreased [Unknown]
  - Off label use [Unknown]

NARRATIVE: CASE EVENT DATE: 2013
